FAERS Safety Report 4905972-4 (Version None)
Quarter: 2006Q1

REPORT INFORMATION
  Report Type: 
  Country: None (occurrence: None)
  Receive Date: 20060206
  Receipt Date: 20060126
  Transmission Date: 20060701
  Serious: Yes (Other)
  Sender: FDA-Public Use
  Company Number: 2006013786

PATIENT
  Age: 76 Year
  Sex: Male
  Weight: 81.6475 kg

DRUGS (1)
  1. CARDURA [Suspect]
     Indication: PROSTATIC DISORDER
     Dosage: 2 MG (2 MG, DAILY INTERVAL: EVERY DAY), ORAL
     Route: 048
     Dates: start: 19880101, end: 19980501

REACTIONS (2)
  - NERVE INJURY [None]
  - PAIN IN EXTREMITY [None]
